FAERS Safety Report 26096920 (Version 2)
Quarter: 2025Q4

REPORT INFORMATION
  Report Type: Spontaneous
  Country: JP (occurrence: JP)
  Receive Date: 20251127
  Receipt Date: 20251211
  Transmission Date: 20260117
  Serious: Yes (Other)
  Sender: ROCHE
  Company Number: JP-002147023-NVSJ2025JP011316

PATIENT
  Age: 83 Year
  Sex: Male

DRUGS (7)
  1. LUCENTIS [Suspect]
     Active Substance: RANIBIZUMAB
     Indication: Retinal vein occlusion
     Dosage: UNK
  2. LUCENTIS [Suspect]
     Active Substance: RANIBIZUMAB
     Dosage: UNK
  3. LUCENTIS [Suspect]
     Active Substance: RANIBIZUMAB
     Dosage: UNK
  4. LUCENTIS [Suspect]
     Active Substance: RANIBIZUMAB
     Dosage: UNK
  5. EYLEA [Concomitant]
     Active Substance: AFLIBERCEPT
     Indication: Retinal vein occlusion
     Dosage: UNK
  6. EYLEA [Concomitant]
     Active Substance: AFLIBERCEPT
     Dosage: UNK
  7. EYLEA [Concomitant]
     Active Substance: AFLIBERCEPT
     Dosage: UNK

REACTIONS (3)
  - Cataract nuclear [Unknown]
  - Wrong technique in product usage process [Unknown]
  - Posterior capsule opacification [Unknown]
